FAERS Safety Report 23922651 (Version 1)
Quarter: 2024Q2

REPORT INFORMATION
  Report Type: Spontaneous
  Country: GB (occurrence: GB)
  Receive Date: 20240531
  Receipt Date: 20240531
  Transmission Date: 20240716
  Serious: Yes (Other)
  Sender: FDA-Public Use
  Company Number: None

PATIENT
  Age: 24 Year
  Sex: Female

DRUGS (11)
  1. HYDROCORTISONE [Suspect]
     Active Substance: HYDROCORTISONE
     Route: 065
  2. HYDROCORTISONE [Suspect]
     Active Substance: HYDROCORTISONE
     Route: 065
  3. CALCIUM CARBONATE\CHOLECALCIFEROL [Concomitant]
     Active Substance: CALCIUM CARBONATE\CHOLECALCIFEROL
     Route: 048
  4. ENOXAPARIN [Concomitant]
     Active Substance: ENOXAPARIN
     Dosage: 40MG/0.4ML SOLUTION FOR INJECTION PRE-FILLED SYRINGES
  5. ACETAMINOPHEN [Concomitant]
     Active Substance: ACETAMINOPHEN
  6. BUTYLSCOPOLAMINE BROMIDE [Concomitant]
     Active Substance: BUTYLSCOPOLAMINE BROMIDE
  7. TRAMADOL [Concomitant]
     Active Substance: TRAMADOL\TRAMADOL HYDROCHLORIDE
     Dates: end: 20240508
  8. ONDANSETRON [Concomitant]
     Active Substance: ONDANSETRON
  9. MORPHINE [Concomitant]
     Active Substance: MORPHINE
     Dosage: 10MG/5ML
     Route: 048
  10. ORTHO EVRA [Concomitant]
     Active Substance: ETHINYL ESTRADIOL\NORELGESTROMIN
     Dosage: ETHINYLESTRADIOL 33.9MICROGRAMS/24HOURS / NORELGESTROMIN?203MICROGRAMS/24HOURS
     Route: 062
  11. NEFOPAM [Concomitant]
     Active Substance: NEFOPAM
     Dates: end: 20240508

REACTIONS (1)
  - Hypertension [Recovering/Resolving]
